FAERS Safety Report 7464790-6 (Version None)
Quarter: 2011Q2

REPORT INFORMATION
  Report Type: 
  Country: None (occurrence: None)
  Receive Date: 20110509
  Receipt Date: 20110428
  Transmission Date: 20111010
  Serious: Yes (Other)
  Sender: FDA-Public Use
  Company Number: US-BAYER-201040984NA

PATIENT
  Age: 21 Year
  Sex: Female
  Weight: 61.224 kg

DRUGS (16)
  1. YAZ [Suspect]
     Indication: ORAL CONTRACEPTION
     Dosage: UNK
     Route: 048
     Dates: start: 20071107, end: 20081006
  2. PHENERGAN HCL [Concomitant]
  3. ZYRTEC [Concomitant]
  4. ZOLOFT [Concomitant]
  5. XANAX [Concomitant]
  6. FLONASE [Concomitant]
  7. KAPIDEX [Concomitant]
  8. YAZ [Suspect]
     Indication: PREMENSTRUAL SYNDROME
  9. PAXIL [Concomitant]
     Indication: DEPRESSION
     Dosage: UNK
     Dates: start: 20091001, end: 20100401
  10. LEVAQUIN [Concomitant]
     Dosage: 500 MG, UNK
     Dates: start: 20091014
  11. YAZ [Suspect]
  12. YAZ [Suspect]
     Indication: ACNE
  13. SERTRALINE HYDROCHLORIDE [Concomitant]
     Indication: DEPRESSION
     Dosage: UNK UNK, QD
     Dates: start: 20070601, end: 20091001
  14. VITAMIN E [Concomitant]
  15. RANITIDINE [Concomitant]
     Indication: ABDOMINAL PAIN UPPER
     Dosage: UNK
     Dates: start: 20070101, end: 20090101
  16. PROZAC [Concomitant]
     Indication: DEPRESSION
     Dosage: UNK
     Dates: start: 20060926

REACTIONS (6)
  - BILIARY DYSKINESIA [None]
  - ABDOMINAL PAIN [None]
  - DEPRESSION [None]
  - GALLBLADDER DISORDER [None]
  - BACK PAIN [None]
  - CHOLECYSTITIS CHRONIC [None]
